FAERS Safety Report 9052815 (Version 1)
Quarter: 2013Q1

REPORT INFORMATION
  Report Type: Report from Study
  Country: DE (occurrence: DE)
  Receive Date: 20130207
  Receipt Date: 20130207
  Transmission Date: 20140127
  Serious: Yes (Hospitalization)
  Sender: FDA-Public Use
  Company Number: DE-TEVA-380503USA

PATIENT
  Sex: Female

DRUGS (2)
  1. BENDAMUSTINE [Suspect]
     Route: 042
     Dates: start: 20121120, end: 20130102
  2. RITUXIMAB [Suspect]
     Route: 042
     Dates: start: 20121119, end: 20130102

REACTIONS (2)
  - Clostridium difficile infection [Recovering/Resolving]
  - Diarrhoea [Recovering/Resolving]
